FAERS Safety Report 5147346-X (Version None)
Quarter: 2006Q4

REPORT INFORMATION
  Report Type: 
  Country: None (occurrence: None)
  Receive Date: 20061103
  Receipt Date: 20061018
  Transmission Date: 20070319
  Serious: Yes (Other)
  Sender: FDA-Public Use
  Company Number: DSA_81734_2006

PATIENT
  Age: 41 Year
  Sex: Male
  Weight: 96.6162 kg

DRUGS (3)
  1. XYREM [Suspect]
     Indication: INSOMNIA
     Dosage: 2.25 TWICE NIGHTLY PO
     Route: 048
     Dates: start: 20060501
  2. FOCALIN [Concomitant]
  3. CLARITIN [Concomitant]

REACTIONS (1)
  - IDIOPATHIC THROMBOCYTOPENIC PURPURA [None]
